FAERS Safety Report 18636261 (Version 1)
Quarter: 2020Q4

REPORT INFORMATION
  Report Type: Spontaneous
  Country: US (occurrence: US)
  Receive Date: 20201218
  Receipt Date: 20201218
  Transmission Date: 20210114
  Serious: No
  Sender: FDA-Public Use
  Company Number: US-REGENERON PHARMACEUTICALS, INC.-2020-37118

PATIENT

DRUGS (3)
  1. EYLEA [Suspect]
     Active Substance: AFLIBERCEPT
     Dosage: RIGHT EYE
     Route: 031
     Dates: start: 20200511, end: 20200511
  2. EYLEA [Suspect]
     Active Substance: AFLIBERCEPT
     Dosage: HIGH DOSE 0.07 IN BOTH EYES/1 VIAL IN EACH EYE
     Route: 031
  3. EYLEA [Suspect]
     Active Substance: AFLIBERCEPT
     Indication: PRODUCT USED FOR UNKNOWN INDICATION
     Dosage: UNK
     Route: 031

REACTIONS (2)
  - Refusal of treatment by patient [Unknown]
  - Overdose [Unknown]

NARRATIVE: CASE EVENT DATE: 20200511
